FAERS Safety Report 10082446 (Version 1)
Quarter: 2014Q2

REPORT INFORMATION
  Report Type: Report from Study
  Country: MX (occurrence: MX)
  Receive Date: 20140416
  Receipt Date: 20140416
  Transmission Date: 20141212
  Serious: Yes (Other)
  Sender: FDA-Public Use
  Company Number: PHHY2014MX046194

PATIENT
  Age: 36 Year
  Sex: Female

DRUGS (7)
  1. EXFORGE [Suspect]
     Indication: HEADACHE
     Dosage: 1 DF, (160/5 MG) DAILY
     Route: 048
     Dates: start: 20140314, end: 20140317
  2. NIMESULIDE [Concomitant]
     Dosage: 100 MG, Q12H FOR ONE WEEK
  3. DICLOFENAC [Concomitant]
     Dosage: 1 DF, QD FOR 10 DAYS
  4. B COMPLEX [Concomitant]
     Dosage: 1 DF, QD FOR 10 DAYS
  5. MULTI-VIT [Concomitant]
     Dosage: UNK UKN, UNK
  6. CIPROFLOXACIN [Concomitant]
     Dosage: 500 MG, QD FOR 2 WEEKS
  7. CLORANFENICOL//CHLORAMPHENICOL [Concomitant]
     Dosage: 200 MG, QD FOR 2 WEEKS

REACTIONS (6)
  - Typhoid fever [Unknown]
  - Discomfort [Not Recovered/Not Resolved]
  - Pain [Not Recovered/Not Resolved]
  - Dizziness [Not Recovered/Not Resolved]
  - Headache [Not Recovered/Not Resolved]
  - Drug ineffective [Not Recovered/Not Resolved]
